FAERS Safety Report 13078966 (Version 2)
Quarter: 2017Q1

REPORT INFORMATION
  Report Type: Spontaneous
  Country: JP (occurrence: JP)
  Receive Date: 20170102
  Receipt Date: 20170210
  Transmission Date: 20170428
  Serious: Yes (Hospitalization)
  Sender: FDA-Public Use
  Company Number: PHJP2016JP028060

PATIENT
  Age: 36 Year
  Sex: Female
  Weight: 49 kg

DRUGS (8)
  1. NEORAL [Suspect]
     Active Substance: CYCLOSPORINE
     Dosage: 200 MG, BID
     Route: 048
     Dates: start: 20100210
  2. IMURAN [Concomitant]
     Active Substance: AZATHIOPRINE
     Indication: PRODUCT USED FOR UNKNOWN INDICATION
     Dosage: 50 MG, QD
     Route: 048
  3. ALDOMET [Concomitant]
     Active Substance: METHYLDOPA
     Indication: PRODUCT USED FOR UNKNOWN INDICATION
     Dosage: 250 MG, QD
     Route: 048
  4. MEDROL [Concomitant]
     Active Substance: METHYLPREDNISOLONE
     Indication: PRODUCT USED FOR UNKNOWN INDICATION
     Dosage: 4 MG, QD
     Route: 048
  5. NEORAL [Suspect]
     Active Substance: CYCLOSPORINE
     Indication: RENAL TRANSPLANT
     Dosage: 150 MG, BID
     Route: 048
     Dates: end: 20100210
  6. OXYTOCIN. [Concomitant]
     Active Substance: OXYTOCIN
     Indication: INDUCED LABOUR
     Dosage: UNK
     Route: 065
  7. PROSTARMON F [Concomitant]
     Active Substance: DINOPROST
     Indication: INDUCED LABOUR
     Dosage: UNK
     Route: 065
     Dates: start: 20100518
  8. ATONIN-O [Concomitant]
     Active Substance: OXYTOCIN
     Indication: INDUCED LABOUR
     Dosage: UNK
     Route: 065
     Dates: start: 20100518

REACTIONS (6)
  - Exposure during breast feeding [Unknown]
  - Normal newborn [Unknown]
  - Gestational hypertension [Recovered/Resolved]
  - Proteinuria [Recovered/Resolved]
  - Obstructed labour [Unknown]
  - Maternal exposure during pregnancy [Unknown]

NARRATIVE: CASE EVENT DATE: 20100430
